FAERS Safety Report 12708020 (Version 1)
Quarter: 2016Q3

REPORT INFORMATION
  Report Type: Report from Study
  Country: DE (occurrence: DE)
  Receive Date: 20160901
  Receipt Date: 20160901
  Transmission Date: 20161109
  Serious: Yes (Hospitalization, Other)
  Sender: FDA-Public Use
  Company Number: DE-ABBVIE-16K-062-1711946-00

PATIENT
  Age: 40 Year
  Sex: Male

DRUGS (1)
  1. HUMIRA [Suspect]
     Active Substance: ADALIMUMAB
     Indication: CROHN^S DISEASE
     Route: 058
     Dates: start: 201308

REACTIONS (7)
  - Erythema nodosum [Recovering/Resolving]
  - Rotator cuff syndrome [Not Recovered/Not Resolved]
  - C-reactive protein increased [Recovering/Resolving]
  - Road traffic accident [Not Recovered/Not Resolved]
  - Sarcoidosis [Recovering/Resolving]
  - Interleukin-2 receptor increased [Recovering/Resolving]
  - Panniculitis [Recovering/Resolving]

NARRATIVE: CASE EVENT DATE: 201606
